FAERS Safety Report 9628008 (Version 2)
Quarter: 2013Q4

REPORT INFORMATION
  Report Type: Spontaneous
  Country: US (occurrence: US)
  Receive Date: 20131016
  Receipt Date: 20131111
  Transmission Date: 20140711
  Serious: Yes (Hospitalization, Other)
  Sender: FDA-Public Use
  Company Number: US-B.I. PHARMACEUTICALS,INC./RIDGEFIELD-2013-BI-32264BP

PATIENT
  Age: 73 Year
  Sex: Female
  Weight: 120 kg

DRUGS (14)
  1. PRADAXA [Suspect]
     Indication: ATRIAL FIBRILLATION
     Dosage: 300 MG
     Route: 048
     Dates: end: 20131009
  2. SPIRIVA [Concomitant]
     Indication: CHRONIC OBSTRUCTIVE PULMONARY DISEASE
  3. LIPITOR [Concomitant]
     Indication: HYPERLIPIDAEMIA
  4. POTASSIUM [Concomitant]
  5. OMEPRAZOLE [Concomitant]
     Indication: PEPTIC ULCER
  6. CORDARONE [Concomitant]
     Indication: CARDIAC DISORDER
  7. LASIX [Concomitant]
  8. SYNTHROID [Concomitant]
     Indication: HYPOTHYROIDISM
  9. XANAX [Concomitant]
  10. METFORMIN [Concomitant]
     Indication: DIABETES MELLITUS
  11. ADVAIR [Concomitant]
  12. AVAPRO [Concomitant]
  13. SIMVASTATIN [Concomitant]
  14. METOPROLOL [Concomitant]

REACTIONS (1)
  - Gastrointestinal haemorrhage [Recovered/Resolved]
